FAERS Safety Report 21696562 (Version 1)
Quarter: 2022Q4

REPORT INFORMATION
  Report Type: Report from Study
  Country: US (occurrence: US)
  Receive Date: 20221207
  Receipt Date: 20221207
  Transmission Date: 20230112
  Serious: No
  Sender: FDA-Public Use
  Company Number: US-ABBVIE-4189336

PATIENT
  Age: 57 Year
  Sex: Female

DRUGS (1)
  1. RINVOQ [Suspect]
     Active Substance: UPADACITINIB
     Indication: Rheumatoid arthritis
     Route: 048
     Dates: start: 20221031

REACTIONS (6)
  - Diarrhoea [Unknown]
  - Joint swelling [Unknown]
  - Headache [Unknown]
  - Arthralgia [Unknown]
  - Drug ineffective [Unknown]
  - Joint stiffness [Unknown]

NARRATIVE: CASE EVENT DATE: 20221001
